FAERS Safety Report 11259082 (Version 1)
Quarter: 2015Q3

REPORT INFORMATION
  Report Type: Spontaneous
  Country: US (occurrence: None)
  Receive Date: 20150709
  Receipt Date: 20150709
  Transmission Date: 20151125
  Serious: Yes (Other)
  Sender: FDA-Public Use
  Company Number: None

PATIENT
  Age: 30 Year
  Sex: Female

DRUGS (2)
  1. IC BUPROPION IICL XL [Concomitant]
  2. GABAPENTIN. [Suspect]
     Active Substance: GABAPENTIN

REACTIONS (4)
  - Disturbance in attention [None]
  - Amnesia [None]
  - Acne [None]
  - Urticaria [None]

NARRATIVE: CASE EVENT DATE: 20150501
